FAERS Safety Report 7605730-6 (Version None)
Quarter: 2011Q3

REPORT INFORMATION
  Report Type: 
  Country: None (occurrence: None)
  Receive Date: 20110705
  Receipt Date: 20110620
  Transmission Date: 20111222
  Serious: Yes (Other)
  Sender: FDA-Public Use
  Company Number: AUR-APL-2011-03598

PATIENT

DRUGS (1)
  1. RISPERIDONE [Suspect]
     Indication: ACUTE PSYCHOSIS

REACTIONS (1)
  - COGWHEEL RIGIDITY [None]
